FAERS Safety Report 9297529 (Version 2)
Quarter: 2013Q3

REPORT INFORMATION
  Report Type: Spontaneous
  Country: IT (occurrence: IT)
  Receive Date: 20130520
  Receipt Date: 20130702
  Transmission Date: 20140515
  Serious: Yes (Other)
  Sender: FDA-Public Use
  Company Number: IT-009507513-1305ITA010444

PATIENT
  Age: 56 Year
  Sex: Female

DRUGS (1)
  1. LOSAPREX [Suspect]
     Dosage: 100 MG, QD
     Route: 048
     Dates: start: 20120114, end: 20130113

REACTIONS (1)
  - Syncope [Recovering/Resolving]
